FAERS Safety Report 5542476-2 (Version None)
Quarter: 2007Q4

REPORT INFORMATION
  Report Type: 
  Country: None (occurrence: None)
  Receive Date: 20071210
  Receipt Date: 20071205
  Transmission Date: 20080405
  Serious: Yes (Death)
  Sender: FDA-Public Use
  Company Number: JP-SANOFI-SYNTHELABO-F01200701578

PATIENT
  Sex: Female

DRUGS (8)
  1. KYTRIL [Concomitant]
     Dosage: UNK
     Dates: start: 20070928, end: 20070928
  2. DECADRON PHOSPHATE [Concomitant]
     Dosage: UNK
     Dates: start: 20070928, end: 20070928
  3. CALCICOL [Concomitant]
     Dosage: UNK
     Dates: start: 20070928, end: 20070928
  4. ASPARA [Concomitant]
     Dosage: UNK
     Dates: start: 20070928, end: 20070928
  5. AVASTIN [Suspect]
     Route: 041
     Dates: start: 20070928, end: 20070928
  6. ISOVORIN [Suspect]
     Route: 041
     Dates: start: 20070928, end: 20070928
  7. FLUOROURACIL [Suspect]
     Route: 041
     Dates: start: 20070928, end: 20070929
  8. ELPLAT [Suspect]
     Indication: COLON CANCER METASTATIC
     Route: 041
     Dates: start: 20070928, end: 20070928

REACTIONS (1)
  - DEATH [None]
